FAERS Safety Report 23626985 (Version 1)
Quarter: 2024Q1

REPORT INFORMATION
  Report Type: Report from Study
  Country: US (occurrence: US)
  Receive Date: 20240313
  Receipt Date: 20240313
  Transmission Date: 20240409
  Serious: No
  Sender: FDA-Public Use
  Company Number: US-SPRINGWORKS THERAPEUTICS-SW-000949

PATIENT
  Age: 18 Year
  Sex: Female
  Weight: 112 kg

DRUGS (43)
  1. NIROGACESTAT [Suspect]
     Active Substance: NIROGACESTAT
     Indication: Desmoid tumour
     Dosage: 90MG/M2, BID
     Route: 048
     Dates: start: 20230324
  2. VITAMIN B6 [Concomitant]
     Active Substance: PYRIDOXINE HYDROCHLORIDE
     Indication: Skin irritation
     Dosage: 50 MILLIGRAM, QD
     Dates: start: 20220923
  3. VITAMIN B6 [Concomitant]
     Active Substance: PYRIDOXINE HYDROCHLORIDE
     Indication: Hand-foot-and-mouth disease
  4. DULOXETINE [Concomitant]
     Active Substance: DULOXETINE
     Indication: Generalised anxiety disorder
     Dosage: 20 MG EVERY MORNING AND 40 MG AT BEDTIME FOR 14 DAYS THEN DECREASE TO 20 MG BID
     Route: 048
     Dates: start: 20230421
  5. DULOXETINE [Concomitant]
     Active Substance: DULOXETINE
     Dosage: 40 MILLIGRAM, BID
     Dates: start: 20230224, end: 20230421
  6. DULOXETINE [Concomitant]
     Active Substance: DULOXETINE
     Dosage: 20 MG ONCE EACH MORNING AND 40 MG AT BEDTIME
     Route: 048
     Dates: start: 20220923, end: 20230224
  7. HYDROMORPHONE [Concomitant]
     Active Substance: HYDROMORPHONE
     Indication: Pain
     Dosage: 4 MG TO 10 MG Q4H IF NEEDED
     Route: 048
     Dates: start: 20230324
  8. BACLOFEN [Concomitant]
     Active Substance: BACLOFEN
     Indication: Pain
     Dosage: 15 MILLIGRAM, BID IN MORNING AND AT BEDTIME
     Route: 048
     Dates: start: 20221202
  9. PREGABALIN [Concomitant]
     Active Substance: PREGABALIN
     Indication: Pain
     Dosage: 300 MILLIGRAM, BID IN THE MORNING AND AT BEDTIME
     Route: 048
     Dates: start: 20220923
  10. ACETAMINOPHEN [Concomitant]
     Active Substance: ACETAMINOPHEN
     Indication: Pain
     Dosage: 650 MILLIGRAM, Q6H AS NEEDE. LIMIT TO 3 DOSES PER DAY
     Dates: start: 20230127
  11. METHADONE [Concomitant]
     Active Substance: METHADONE HYDROCHLORIDE
     Indication: Pain
     Dosage: 2.5 MG IN THE MORNING AND 5 MG IN THE EVENING
     Dates: start: 20230421
  12. METHADONE [Concomitant]
     Active Substance: METHADONE HYDROCHLORIDE
     Dosage: 10 MG IN THE MORNING AND AT BEDTIME AND 5 MG WITH LUNCH
     Route: 048
     Dates: start: 20230324, end: 20230421
  13. METHADONE [Concomitant]
     Active Substance: METHADONE HYDROCHLORIDE
     Dosage: 10 MILLIGRAM, BID
     Dates: start: 20230224, end: 20230324
  14. METHADONE [Concomitant]
     Active Substance: METHADONE HYDROCHLORIDE
     Dosage: 5 MG IN THE MORNING AND 10 MG AT BEDTIME
     Dates: start: 20230208, end: 20230224
  15. METHADONE [Concomitant]
     Active Substance: METHADONE HYDROCHLORIDE
     Dosage: 5 MG IN THE MORNING AND 10 MG AT BEDTIME
     Dates: start: 20230127, end: 20230208
  16. METHADONE [Concomitant]
     Active Substance: METHADONE HYDROCHLORIDE
     Dosage: 5 MILLIGRAM, BID
     Route: 048
     Dates: start: 20221229, end: 20230127
  17. METHADONE [Concomitant]
     Active Substance: METHADONE HYDROCHLORIDE
     Dosage: 5 MILLIGRAM, BID
     Route: 048
     Dates: start: 20221229, end: 20230127
  18. LISINOPRIL [Concomitant]
     Active Substance: LISINOPRIL
     Indication: Hypertension
     Dosage: 10 MILLIGRAM, QD
     Dates: start: 20230407
  19. LIDOCAINE [Concomitant]
     Active Substance: LIDOCAINE
     Indication: Sedative therapy
     Dosage: 60 MILLIGRAM
     Route: 042
     Dates: start: 20230331, end: 20230331
  20. GADOBUTROL [Concomitant]
     Active Substance: GADOBUTROL
     Indication: Scan with contrast
     Dosage: 10 MILLILITER, SINGLE
     Dates: start: 20230331, end: 20230331
  21. GADOBUTROL [Concomitant]
     Active Substance: GADOBUTROL
     Dosage: 10 MILLILITER
     Dates: start: 20230208, end: 20230208
  22. LACTATED RINGERS SOLUTION [Concomitant]
     Active Substance: CALCIUM CHLORIDE\POTASSIUM CHLORIDE\SODIUM CHLORIDE\SODIUM LACTATE
     Indication: Fluid replacement
     Dosage: CONTINUOUS @10 MILLILITER/ HR
     Dates: start: 20230331, end: 20230401
  23. LACTATED RINGERS SOLUTION [Concomitant]
     Active Substance: CALCIUM CHLORIDE\POTASSIUM CHLORIDE\SODIUM CHLORIDE\SODIUM LACTATE
     Dosage: CONTINUOUS @ 10 ML/HR, ONCE
     Route: 042
     Dates: start: 20230208, end: 20230208
  24. BUFFERED LIDOCAINE [Concomitant]
     Indication: Pain
     Dosage: 1% J-TIP 0.2 ML
     Dates: start: 20230331, end: 20230331
  25. BUFFERED LIDOCAINE [Concomitant]
     Dosage: 1 % J-TIP 0.2 ML
     Dates: start: 20230208, end: 20230208
  26. MIDAZOLAM [Concomitant]
     Active Substance: MIDAZOLAM
     Indication: Sedative therapy
     Dosage: DOSAGE: ONCE @ 48 ML.HR OVER 5 MINS
     Dates: start: 20230331, end: 20230331
  27. ONDANSETRON [Concomitant]
     Active Substance: ONDANSETRON
     Indication: Prophylaxis of nausea and vomiting
     Dosage: DOSAGE: ONCE, @ 48 ML/HR OVER 5 MIN
     Dates: start: 20230331, end: 20230331
  28. PROPOFOL [Concomitant]
     Active Substance: PROPOFOL
     Indication: Sedative therapy
     Dosage: 200 MILLIGRAM
     Route: 042
     Dates: start: 20230331, end: 20230331
  29. PROPOFOL [Concomitant]
     Active Substance: PROPOFOL
     Dosage: 20 MILLIGRAM
     Dates: start: 20230208, end: 20230208
  30. NYSTATIN [Concomitant]
     Active Substance: NYSTATIN
     Indication: Dermatitis
     Dosage: 100000 UNIT/ GM POWDER
     Route: 061
     Dates: start: 20230331
  31. ENOXAPARIN [Concomitant]
     Active Substance: ENOXAPARIN
     Indication: Thrombosis
     Dosage: 40MG / 0.4 ML SOLN, PREFILLED SYRINGEBID
     Dates: start: 20230324
  32. ENALAPRIL [Concomitant]
     Active Substance: ENALAPRIL
     Indication: Hypertension
     Dosage: 10 MILLIGRAM, QD, IN THE MORNING
     Route: 048
     Dates: start: 20230324, end: 20230407
  33. MELATONIN [Concomitant]
     Active Substance: MELATONIN
     Indication: Sleep disorder
     Dosage: 6 MILLIGRAM, HS
     Dates: start: 20230224, end: 20230415
  34. HYDROMORPHONE [Concomitant]
     Active Substance: HYDROMORPHONE
     Indication: Pain
     Dosage: 4 MILLIGRAM, Q8H TO 10 MG IF NEEDED
     Route: 048
     Dates: start: 20230224, end: 20230324
  35. HYDROMORPHONE [Concomitant]
     Active Substance: HYDROMORPHONE
     Dosage: 4 MILLIGRAM, Q4H
     Route: 048
     Dates: start: 20230127, end: 20230208
  36. HYDROMORPHONE [Concomitant]
     Active Substance: HYDROMORPHONE
     Dosage: 4-10 MG, Q4H
     Route: 048
     Dates: start: 20220729, end: 20230127
  37. IODIXANOL [Concomitant]
     Active Substance: IODIXANOL
     Indication: Scan with contrast
     Dosage: 100 MILLILITER
     Route: 042
     Dates: start: 20230208, end: 20230208
  38. HYDROMORPHONE [Concomitant]
     Active Substance: HYDROMORPHONE
     Indication: Sedative therapy
     Dosage: 1 MILLIGRAM
     Route: 042
     Dates: start: 20230208, end: 20230208
  39. LIDOCAINE [Concomitant]
     Active Substance: LIDOCAINE
     Indication: Sedative therapy
     Dosage: 2% INJECTION, 100 MILLIGRAM
     Dates: start: 20230208, end: 20230208
  40. CETIRIZINE [Concomitant]
     Active Substance: CETIRIZINE HYDROCHLORIDE
     Indication: Hypersensitivity
     Dosage: 10 MILLIGRAM, QD
     Dates: start: 20220923
  41. RIVAROXABAN [Concomitant]
     Active Substance: RIVAROXABAN
     Indication: Thrombosis
     Dosage: 10 MILLIGRAM, QD IN THE MORNING
     Route: 048
     Dates: start: 20220923, end: 20230421
  42. METHYLPREDNISOLONE [Concomitant]
     Active Substance: METHYLPREDNISOLONE
     Indication: Pleurisy
     Dosage: 4 MILLIGRAM
     Dates: start: 20220411, end: 20230414
  43. LEVOTHYROXINE [Concomitant]
     Active Substance: LEVOTHYROXINE\LEVOTHYROXINE SODIUM
     Indication: Hypothyroidism
     Dosage: 50 MICROGRAM, QD
     Dates: start: 20230208

REACTIONS (2)
  - Lymphocyte count decreased [Recovered/Resolved]
  - Dermatitis [Recovered/Resolved]

NARRATIVE: CASE EVENT DATE: 20230331
